FAERS Safety Report 20256037 (Version 1)
Quarter: 2021Q4

REPORT INFORMATION
  Report Type: Report from Study
  Country: BR (occurrence: BR)
  Receive Date: 20211230
  Receipt Date: 20211230
  Transmission Date: 20220303
  Serious: Yes (Hospitalization, Other)
  Sender: FDA-Public Use
  Company Number: BR-ABBVIE-21K-020-4211582-00

PATIENT
  Sex: Male
  Weight: 122 kg

DRUGS (6)
  1. HUMIRA [Suspect]
     Active Substance: ADALIMUMAB
     Indication: Ankylosing spondylitis
     Route: 058
     Dates: start: 20190103, end: 201910
  2. ADALIMUMAB [Suspect]
     Active Substance: ADALIMUMAB
     Indication: Ankylosing spondylitis
     Route: 058
     Dates: start: 2017
  3. ESCITALOPRAM [Concomitant]
     Active Substance: ESCITALOPRAM OXALATE
     Indication: Anxiety
  4. AMLODIPINE BESYLATE [Concomitant]
     Active Substance: AMLODIPINE BESYLATE
     Indication: Product used for unknown indication
     Dosage: IN THE MORNING
  5. NEBIVOLOL [Concomitant]
     Active Substance: NEBIVOLOL
     Indication: Product used for unknown indication
  6. FLUXOCOR [Concomitant]
     Indication: Product used for unknown indication

REACTIONS (8)
  - Ligament rupture [Unknown]
  - Drug ineffective [Unknown]
  - Spinal pain [Unknown]
  - Arthralgia [Unknown]
  - Pain in extremity [Unknown]
  - Weight abnormal [Unknown]
  - Swelling [Unknown]
  - Procedural complication [Unknown]

NARRATIVE: CASE EVENT DATE: 20190101
